FAERS Safety Report 25082618 (Version 1)
Quarter: 2025Q1

REPORT INFORMATION
  Report Type: Spontaneous
  Country: US (occurrence: US)
  Receive Date: 20250317
  Receipt Date: 20250317
  Transmission Date: 20250408
  Serious: Yes (Life-Threatening, Hospitalization, Other)
  Sender: AUROBINDO
  Company Number: US-MLMSERVICE-20250224-PI427320-00095-1

PATIENT
  Age: 76 Year
  Sex: Female

DRUGS (1)
  1. HYDROXYCHLOROQUINE [Suspect]
     Active Substance: HYDROXYCHLOROQUINE
     Indication: Sjogren^s syndrome
     Route: 065

REACTIONS (3)
  - Heart failure with reduced ejection fraction [Recovering/Resolving]
  - Cardiomyopathy [Recovering/Resolving]
  - Congestive hepatopathy [Unknown]
